FAERS Safety Report 4789569-5 (Version None)
Quarter: 2005Q4

REPORT INFORMATION
  Report Type: 
  Country: None (occurrence: None)
  Receive Date: 20051005
  Receipt Date: 20051005
  Transmission Date: 20060501
  Serious: Yes (Hospitalization)
  Sender: FDA-Public Use
  Company Number: None

PATIENT
  Age: 26 Year
  Sex: Female
  Weight: 89 kg

DRUGS (5)
  1. NAFCILLIN [Suspect]
     Indication: BACTERAEMIA
     Dosage: 2GM IV Q 4 HOURS
     Route: 042
     Dates: start: 20050207, end: 20050306
  2. NAFCILLIN [Suspect]
     Indication: STAPHYLOCOCCAL INFECTION
     Dosage: 2GM IV Q 4 HOURS
     Route: 042
     Dates: start: 20050207, end: 20050306
  3. POTASSIUM CHLORIDE [Concomitant]
  4. CALCIUM GLUCONATE [Concomitant]
  5. PRE-NATAL VITAMINS [Concomitant]

REACTIONS (3)
  - DRUG HYPERSENSITIVITY [None]
  - RASH ERYTHEMATOUS [None]
  - RASH PRURITIC [None]
